FAERS Safety Report 7692317-2 (Version None)
Quarter: 2011Q3

REPORT INFORMATION
  Report Type: 
  Country: None (occurrence: None)
  Receive Date: 20110818
  Receipt Date: 20110817
  Transmission Date: 20111222
  Serious: Yes (Death, Hospitalization, Other)
  Sender: FDA-Public Use
  Company Number: PHEH2009US16957

PATIENT
  Sex: Female

DRUGS (31)
  1. METHADONE HYDROCHLORIDE [Concomitant]
     Dosage: 40 MG, BID
     Route: 048
  2. ZEGERID [Concomitant]
  3. PROTONIX [Concomitant]
     Dosage: 40 MG, QD
     Route: 042
  4. SENOKOT [Concomitant]
  5. SOLU-MEDROL [Concomitant]
     Route: 042
  6. PULMICORT [Concomitant]
  7. OXYCONTIN [Concomitant]
     Dosage: 480 MG, TID
     Route: 048
  8. POTASSIUM CHLORIDE [Concomitant]
     Dosage: 10 MEQ, DAILY
     Route: 048
  9. ADVIL LIQUI-GELS [Concomitant]
  10. ZOMETA [Suspect]
  11. PEPCID [Concomitant]
     Dosage: 20 MG, DAILY
     Route: 048
  12. DEXAMETHASONE [Concomitant]
     Route: 048
  13. BENZONATATE [Concomitant]
     Dosage: 20 MG, DAILY
  14. CHLORHEXIDINE GLUCONATE [Concomitant]
     Route: 061
  15. IPRATROPIUM BROMIDE [Concomitant]
  16. PIPERACILLIN AND TAZOBACTAM [Concomitant]
  17. ZOLPIDEM [Concomitant]
     Dosage: 10 MG, QHS
     Route: 048
  18. DIFLUCAN [Concomitant]
     Dosage: 100 MG, QD
     Route: 048
  19. DECADRON [Concomitant]
  20. LORAZEPAM [Concomitant]
     Dosage: 1 MG, QHS
     Route: 048
  21. SENNA-S (DOCUSATE SODIUM/SENNA ALEXANDRINA) [Concomitant]
  22. DULCOLAX [Concomitant]
     Dosage: 10 MG, QHS
     Route: 048
  23. HYTRIN [Concomitant]
     Dosage: 1 MG, Q12H
     Route: 048
  24. GABAPENTIN [Concomitant]
     Dosage: UNK
     Route: 048
  25. ENOXAPARIN [Concomitant]
     Dosage: 0.4 ML, DAILY
     Route: 058
  26. DILAUDID [Concomitant]
     Dosage: 4-6 TABS,  Q2H
     Route: 048
  27. MIRALAX [Concomitant]
     Dosage: 17 G, DAILY
     Route: 048
  28. AMBIEN [Concomitant]
     Dosage: 10 MG, QHS
     Route: 048
  29. CELEBREX [Concomitant]
     Dosage: 200 MG, DAILY
     Route: 048
  30. KYTRIL [Concomitant]
     Dosage: 1 MG, Q12H
  31. METHYLPREDNISOLONE [Concomitant]

REACTIONS (56)
  - OEDEMA PERIPHERAL [None]
  - MUSCULOSKELETAL CHEST PAIN [None]
  - BACK PAIN [None]
  - VISION BLURRED [None]
  - ABDOMINAL PAIN [None]
  - ILEUS [None]
  - DEATH [None]
  - DRUG HYPERSENSITIVITY [None]
  - PLEURAL EFFUSION [None]
  - CONSTIPATION [None]
  - MUSCULOSKELETAL PAIN [None]
  - PARAPSORIASIS [None]
  - GENERAL PHYSICAL HEALTH DETERIORATION [None]
  - OSTEONECROSIS OF JAW [None]
  - PNEUMONIA [None]
  - ACUTE RESPIRATORY FAILURE [None]
  - BONE NEOPLASM MALIGNANT [None]
  - TOBACCO ABUSE [None]
  - RESPIRATORY DISTRESS [None]
  - ANHEDONIA [None]
  - DYSPNOEA [None]
  - EMBOLISM VENOUS [None]
  - GASTROOESOPHAGEAL REFLUX DISEASE [None]
  - HEADACHE [None]
  - OSTEOSCLEROSIS [None]
  - THROMBOCYTOPENIA [None]
  - PNEUMOTHORAX [None]
  - METASTASES TO PLEURA [None]
  - OBESITY [None]
  - PRODUCTIVE COUGH [None]
  - PYREXIA [None]
  - DECREASED APPETITE [None]
  - MICTURITION FREQUENCY DECREASED [None]
  - FATIGUE [None]
  - ASTHENIA [None]
  - BREAST PAIN [None]
  - PAIN [None]
  - ANXIETY [None]
  - DEEP VEIN THROMBOSIS [None]
  - SINUS TACHYCARDIA [None]
  - HIP FRACTURE [None]
  - ABDOMINAL DISTENSION [None]
  - ECZEMA [None]
  - HYPERTHERMIA [None]
  - LEFT VENTRICULAR HYPERTROPHY [None]
  - MYOPATHY [None]
  - HYPONATRAEMIA [None]
  - HYPOKALAEMIA [None]
  - WHEEZING [None]
  - HYPERTRIGLYCERIDAEMIA [None]
  - LUNG NEOPLASM MALIGNANT [None]
  - METASTASES TO BONE [None]
  - ATELECTASIS [None]
  - ANAEMIA OF MALIGNANT DISEASE [None]
  - BRONCHITIS [None]
  - NAUSEA [None]
